FAERS Safety Report 6182509-6 (Version None)
Quarter: 2009Q2

REPORT INFORMATION
  Report Type: 
  Country: None (occurrence: None)
  Receive Date: 20090507
  Receipt Date: 20090428
  Transmission Date: 20091009
  Serious: Yes (Other)
  Sender: FDA-Public Use
  Company Number: BR-ROCHE-630733

PATIENT
  Weight: 3.2 kg

DRUGS (2)
  1. ROACUTAN [Suspect]
     Indication: DRUG USE FOR UNKNOWN INDICATION
     Route: 064
     Dates: start: 19950101, end: 19950101
  2. YASMIN [Concomitant]
     Indication: CONTRACEPTION
     Route: 064

REACTIONS (3)
  - ILL-DEFINED DISORDER [None]
  - PLACENTAL DISORDER [None]
  - PREMATURE LABOUR [None]
